FAERS Safety Report 10468392 (Version 1)
Quarter: 2014Q3

REPORT INFORMATION
  Report Type: Spontaneous
  Country: US (occurrence: US)
  Receive Date: 20140922
  Receipt Date: 20140922
  Transmission Date: 20150326
  Serious: No
  Sender: FDA-Public Use
  Company Number: US-ALLERGAN-1406463US

PATIENT
  Age: 81 Year
  Sex: Female

DRUGS (2)
  1. LASTACAFT [Suspect]
     Active Substance: ALCAFTADINE
     Indication: HYPERSENSITIVITY
     Dosage: 2 GTT, SINGLE
     Route: 047
  2. LASTACAFT [Suspect]
     Active Substance: ALCAFTADINE
     Indication: LACRIMATION INCREASED

REACTIONS (1)
  - Feeling abnormal [Recovered/Resolved]
